FAERS Safety Report 16768370 (Version 1)
Quarter: 2019Q3

REPORT INFORMATION
  Report Type: Spontaneous
  Country: US (occurrence: US)
  Receive Date: 20190903
  Receipt Date: 20190903
  Transmission Date: 20191005
  Serious: Yes (Hospitalization)
  Sender: FDA-Public Use
  Company Number: US-SA-2019SA242175

PATIENT
  Sex: Male
  Weight: 120 kg

DRUGS (15)
  1. TAMSULOSIN [Concomitant]
     Active Substance: TAMSULOSIN
     Dosage: 4 MG, QD
  2. ATORVASTATIN [Concomitant]
     Active Substance: ATORVASTATIN
     Dosage: 40 MG, QD
  3. BUPROPION. [Concomitant]
     Active Substance: BUPROPION
     Dosage: 150 MG, QD
  4. VENLAFAXINE [Concomitant]
     Active Substance: VENLAFAXINE HYDROCHLORIDE
     Dosage: 75 MG, QD
  5. BABY ASPIRIN [Concomitant]
     Active Substance: ASPIRIN
     Dosage: 82.5 MG
  6. GABAPENTIN. [Concomitant]
     Active Substance: GABAPENTIN
     Dosage: 300 MG, BID
  7. PLAVIX [Suspect]
     Active Substance: CLOPIDOGREL BISULFATE
     Dosage: UNK
  8. AMLODIPINE [Concomitant]
     Active Substance: AMLODIPINE BESYLATE
     Dosage: 75 MG, QD
  9. CARVEDILOL. [Concomitant]
     Active Substance: CARVEDILOL
     Dosage: 3.12 MG, BID
  10. METFORMIN [Concomitant]
     Active Substance: METFORMIN HYDROCHLORIDE
     Dosage: 500 MG, BID
  11. LISINOPRIL. [Concomitant]
     Active Substance: LISINOPRIL
     Dosage: 40 MG, BID, MORNING
  12. ELIQUIS [Suspect]
     Active Substance: APIXABAN
     Indication: DEEP VEIN THROMBOSIS
     Dosage: 5 MG
     Route: 048
  13. VITAMIN D [ERGOCALCIFEROL] [Concomitant]
     Active Substance: ERGOCALCIFEROL
     Dosage: UNK UNK, QD
  14. LEVOTHYROXINE. [Concomitant]
     Active Substance: LEVOTHYROXINE
     Dosage: 500 MG, QD
  15. SERTRALINE [Concomitant]
     Active Substance: SERTRALINE HYDROCHLORIDE
     Dosage: 100 MG, QD

REACTIONS (5)
  - Cerebrovascular accident [Unknown]
  - Coagulopathy [Unknown]
  - Peripheral arterial occlusive disease [Unknown]
  - Localised infection [Unknown]
  - Drug ineffective [Unknown]
